FAERS Safety Report 6908588-3 (Version None)
Quarter: 2010Q3

REPORT INFORMATION
  Report Type: 
  Country: None (occurrence: None)
  Receive Date: 20100805
  Receipt Date: 20100802
  Transmission Date: 20110219
  Serious: Yes (Hospitalization)
  Sender: FDA-Public Use
  Company Number: SE-MERCK-1008SWE00006

PATIENT
  Age: 68 Year
  Sex: Male

DRUGS (6)
  1. ZOCOR [Suspect]
     Indication: HYPERCHOLESTEROLAEMIA
     Route: 048
     Dates: start: 20090701, end: 20100117
  2. SANDIMMUNE [Suspect]
     Route: 048
  3. PREDNISOLONE [Concomitant]
     Route: 065
  4. AZATIOPRIN [Concomitant]
     Route: 065
  5. FURIX [Concomitant]
     Route: 065
  6. GLYTRIN [Concomitant]
     Route: 065

REACTIONS (2)
  - DRUG INTERACTION [None]
  - RHABDOMYOLYSIS [None]
